FAERS Safety Report 13069946 (Version 2)
Quarter: 2017Q2

REPORT INFORMATION
  Report Type: Report from Study
  Country: US (occurrence: US)
  Receive Date: 20161228
  Receipt Date: 20170412
  Transmission Date: 20170830
  Serious: Yes (Hospitalization)
  Sender: FDA-Public Use
  Company Number: US-ACTELION-A-NJ2016-147336

PATIENT
  Age: 31 Year
  Sex: Female

DRUGS (5)
  1. POTASSIUM [Concomitant]
     Active Substance: POTASSIUM
  2. OPSUMIT [Suspect]
     Active Substance: MACITENTAN
     Indication: PULMONARY ARTERIAL HYPERTENSION
     Dosage: 10 MG, QD
     Route: 048
     Dates: start: 20161030
  3. ORTHO CYCLEN [Concomitant]
     Active Substance: ETHINYL ESTRADIOL\NORGESTIMATE
  4. ADEMPAS [Concomitant]
     Active Substance: RIOCIGUAT
  5. LASIX [Concomitant]
     Active Substance: FUROSEMIDE

REACTIONS (6)
  - Supraventricular tachycardia [Recovering/Resolving]
  - Headache [Unknown]
  - Oedema peripheral [Unknown]
  - Drug dose omission [Recovered/Resolved]
  - Flushing [Unknown]
  - Right ventricular failure [Recovering/Resolving]

NARRATIVE: CASE EVENT DATE: 20161130
